FAERS Safety Report 11258515 (Version 2)
Quarter: 2015Q3

REPORT INFORMATION
  Report Type: Spontaneous
  Country: JP (occurrence: None)
  Receive Date: 20150708
  Receipt Date: 20150811
  Transmission Date: 20151125
  Serious: Yes (Hospitalization)
  Sender: FDA-Public Use
  Company Number: 2015FE02215

PATIENT
  Age: 75 Year
  Sex: Male
  Weight: 43 kg

DRUGS (6)
  1. ZOMETA [Concomitant]
     Active Substance: ZOLEDRONIC ACID
  2. XTANDI [Suspect]
     Active Substance: ENZALUTAMIDE
     Indication: PROSTATE CANCER
     Dosage: 160 MG, ONCE/SINGLE
     Route: 048
     Dates: start: 20150205, end: 20150301
  3. PREDNISOLONE. [Concomitant]
     Active Substance: PREDNISOLONE
  4. DOCETAXEL. [Concomitant]
     Active Substance: DOCETAXEL
  5. ZYTIGA (ABIRATERONE ACETATE) [Concomitant]
  6. GONAX (DEGARELIX) POWDER AND SOLVENT FOR SOLUTION FOR INJECTION [Suspect]
     Active Substance: DEGARELIX
     Indication: PROSTATIC SPECIFIC ANTIGEN INCREASED
     Dosage: 80 MG, MONTHLY, SUBCUTANEOUS
     Route: 058
     Dates: start: 20131226

REACTIONS (3)
  - Decreased appetite [None]
  - Dehydration [None]
  - Vomiting [None]

NARRATIVE: CASE EVENT DATE: 20150301
